FAERS Safety Report 9602302 (Version 1)
Quarter: 2013Q4

REPORT INFORMATION
  Report Type: Report from Study
  Country: AU (occurrence: AU)
  Receive Date: 20131007
  Receipt Date: 20131007
  Transmission Date: 20140711
  Serious: Yes (Death, Other)
  Sender: FDA-Public Use
  Company Number: AU-PFIZER INC-2013281130

PATIENT
  Sex: Female

DRUGS (2)
  1. IBUPROFEN [Suspect]
     Dosage: UNK
  2. CODEINE [Suspect]
     Dosage: UNK

REACTIONS (2)
  - Toxicity to various agents [Fatal]
  - Intentional drug misuse [Unknown]
